FAERS Safety Report 25429855 (Version 1)
Quarter: 2025Q2

REPORT INFORMATION
  Report Type: Spontaneous
  Country: ES (occurrence: ES)
  Receive Date: 20250612
  Receipt Date: 20250612
  Transmission Date: 20250717
  Serious: Yes (Death)
  Sender: AMGEN
  Company Number: ES-AMGEN-ESPSP2025112741

PATIENT

DRUGS (1)
  1. TRASTUZUMAB [Suspect]
     Active Substance: TRASTUZUMAB
     Indication: Product used for unknown indication
     Route: 065

REACTIONS (13)
  - Death [Fatal]
  - Hypersensitivity [Unknown]
  - Erythema [Unknown]
  - Flushing [Unknown]
  - Chest pain [Unknown]
  - Dyspnoea [Unknown]
  - Gastrointestinal disorder [Unknown]
  - Back pain [Unknown]
  - Cardiovascular disorder [Unknown]
  - Abdominal pain [Unknown]
  - Dizziness [Unknown]
  - Hyperhidrosis [Unknown]
  - Pruritus [Unknown]
